FAERS Safety Report 6040210-3 (Version None)
Quarter: 2009Q1

REPORT INFORMATION
  Report Type: 
  Country: None (occurrence: None)
  Receive Date: 20090116
  Receipt Date: 20080115
  Transmission Date: 20090719
  Serious: No
  Sender: FDA-Public Use
  Company Number: US-BRISTOL-MYERS SQUIBB COMPANY-14040745

PATIENT
  Age: 43 Year
  Sex: Female
  Weight: 65 kg

DRUGS (6)
  1. ABILIFY [Suspect]
     Route: 048
  2. METFORMIN [Concomitant]
     Route: 048
  3. LEVOXYL [Concomitant]
     Route: 048
  4. TEGRETOL [Concomitant]
     Route: 048
  5. LAMISIL [Concomitant]
     Route: 048
  6. KLONOPIN [Concomitant]
     Route: 048

REACTIONS (1)
  - WEIGHT INCREASED [None]
